FAERS Safety Report 8492766-9 (Version None)
Quarter: 2012Q2

REPORT INFORMATION
  Report Type: 
  Country: None (occurrence: None)
  Receive Date: 20120629
  Receipt Date: 20120629
  Transmission Date: 20120825
  Serious: No
  Sender: FDA-Public Use
  Company Number: None

PATIENT
  Sex: Female

DRUGS (2)
  1. CHLORAPREP [Suspect]
     Indication: THERAPEUTIC SKIN CARE TOPICAL
     Dosage: 1.5ML, ONCE, TOPICAL ABOUT ONE YEAR AGO (2011)
     Route: 061
     Dates: start: 20110101
  2. CHLORAPREP [Suspect]
     Indication: PREOPERATIVE CARE
     Dosage: 1.5ML, ONCE, TOPICAL ABOUT ONE YEAR AGO (2011)
     Route: 061
     Dates: start: 20110101

REACTIONS (1)
  - INJURY ASSOCIATED WITH DEVICE [None]
